FAERS Safety Report 13397523 (Version 1)
Quarter: 2017Q2

REPORT INFORMATION
  Report Type: Spontaneous
  Country: PL (occurrence: PL)
  Receive Date: 20170403
  Receipt Date: 20170403
  Transmission Date: 20170830
  Serious: Yes (Other)
  Sender: FDA-Public Use
  Company Number: PL-BAYER-2017-056860

PATIENT
  Age: 57 Year

DRUGS (1)
  1. NEXAVAR [Suspect]
     Active Substance: SORAFENIB
     Indication: RENAL CANCER METASTATIC
     Dosage: UNK
     Route: 048
     Dates: start: 200907, end: 201010

REACTIONS (2)
  - Renal cancer metastatic [None]
  - General physical health deterioration [None]

NARRATIVE: CASE EVENT DATE: 201010
